FAERS Safety Report 5822003-2 (Version None)
Quarter: 2008Q3

REPORT INFORMATION
  Report Type: 
  Country: None (occurrence: None)
  Receive Date: 20080724
  Receipt Date: 20080715
  Transmission Date: 20090109
  Serious: Yes (Hospitalization, Other)
  Sender: FDA-Public Use
  Company Number: CA-ALLERGAN-200510802

PATIENT
  Sex: Female
  Weight: 47.727 kg

DRUGS (14)
  1. BOTOX COSMETIC [Suspect]
     Indication: SKIN WRINKLING
     Dosage: ABOVE LIP
     Route: 030
     Dates: start: 20030301, end: 20030301
  2. BOTOX COSMETIC [Suspect]
     Dosage: ABOVE LIP
     Route: 030
     Dates: start: 20030601, end: 20030601
  3. BOTOX COSMETIC [Suspect]
     Dosage: ABOVE LIPS AND UNDER CHIN
     Route: 030
     Dates: start: 20031001, end: 20031001
  4. BOTOX COSMETIC [Suspect]
     Dosage: LIPS
     Route: 030
     Dates: start: 20031201, end: 20031201
  5. BOTOX COSMETIC [Suspect]
     Dosage: UNK, SINGLE
     Route: 030
     Dates: start: 20020901, end: 20020901
  6. BOTOX COSMETIC [Suspect]
     Dosage: UNK, SINGLE
     Route: 030
     Dates: start: 20031101, end: 20031101
  7. PREMARIN [Concomitant]
     Indication: HORMONE REPLACEMENT THERAPY
     Route: 048
     Dates: start: 20040101
  8. PREMARIN [Concomitant]
     Dosage: STARTED IN 2000
     Route: 048
     Dates: start: 20000101, end: 20040101
  9. ATIVAN [Concomitant]
     Indication: SLEEP DISORDER THERAPY
     Dosage: DOSE QUANTITY: .5, PRN
     Route: 048
  10. AMITRIPTYLINE HCL [Concomitant]
     Indication: DRUG USE FOR UNKNOWN INDICATION
     Dosage: 20 MG, UNK
  11. AMITRIPTYLINE HCL [Concomitant]
     Dosage: 30 MG, QD
  12. TAMBOCOR [Concomitant]
     Indication: ARRHYTHMIA
     Dosage: 50 MG, UNK
  13. DIGOXIN [Concomitant]
     Indication: ARRHYTHMIA
     Dosage: 0.125 MG, UNK
  14. ASCORBIC ACID [Concomitant]
     Indication: DRUG USE FOR UNKNOWN INDICATION

REACTIONS (50)
  - ASTHENIA [None]
  - BLOOD PRESSURE DECREASED [None]
  - BLOOD TEST ABNORMAL [None]
  - BOTULISM [None]
  - BURNING SENSATION [None]
  - CHEST PAIN [None]
  - DEHYDRATION [None]
  - DIARRHOEA [None]
  - DIPLOPIA [None]
  - DIZZINESS [None]
  - DRY MOUTH [None]
  - DRY SKIN [None]
  - DYSPHAGIA [None]
  - DYSPNOEA [None]
  - EAR DISCOMFORT [None]
  - ENAMEL ANOMALY [None]
  - EYE PAIN [None]
  - FACIAL PARESIS [None]
  - GASTROINTESTINAL DISORDER [None]
  - HEADACHE [None]
  - HEART RATE DECREASED [None]
  - HEART RATE IRREGULAR [None]
  - HYPOAESTHESIA [None]
  - HYPOAESTHESIA FACIAL [None]
  - HYPOPHAGIA [None]
  - INFLAMMATION [None]
  - LIP DISORDER [None]
  - MADAROSIS [None]
  - MASS [None]
  - MUSCLE SPASMS [None]
  - MUSCLE TIGHTNESS [None]
  - MUSCULAR WEAKNESS [None]
  - NAUSEA [None]
  - ONYCHOMADESIS [None]
  - PALPITATIONS [None]
  - PARAESTHESIA ORAL [None]
  - POLLAKIURIA [None]
  - PRODUCTIVE COUGH [None]
  - RASH [None]
  - SALIVA ALTERED [None]
  - SENSATION OF FOREIGN BODY [None]
  - SENSORY DISTURBANCE [None]
  - SINUS DISORDER [None]
  - SKIN DISORDER [None]
  - SWELLING FACE [None]
  - TENSION HEADACHE [None]
  - TOOTH DISORDER [None]
  - URINARY TRACT DISORDER [None]
  - VEIN DISORDER [None]
  - WEIGHT DECREASED [None]
